FAERS Safety Report 22081546 (Version 1)
Quarter: 2023Q1

REPORT INFORMATION
  Report Type: Report from Study
  Country: GB (occurrence: GB)
  Receive Date: 20230310
  Receipt Date: 20230310
  Transmission Date: 20230417
  Serious: Yes (Other)
  Sender: FDA-Public Use
  Company Number: GB-IPSEN Group, Research and Development-2023-05998

PATIENT
  Age: 4 Year
  Sex: Male
  Weight: 7.6 kg

DRUGS (2)
  1. INCRELEX [Suspect]
     Active Substance: MECASERMIN
     Indication: Product used for unknown indication
     Dosage: BID
     Route: 065
     Dates: start: 20080130
  2. INCRELEX [Suspect]
     Active Substance: MECASERMIN
     Dosage: BID
     Route: 065
     Dates: start: 20140115

REACTIONS (1)
  - Papilloedema [Recovered/Resolved]

NARRATIVE: CASE EVENT DATE: 20090809
